FAERS Safety Report 25039513 (Version 1)
Quarter: 2025Q1

REPORT INFORMATION
  Report Type: Spontaneous
  Country: US (occurrence: US)
  Receive Date: 20250305
  Receipt Date: 20250305
  Transmission Date: 20250409
  Serious: No
  Sender: TARO
  Company Number: US-TARO PHARMACEUTICALS USA INC.-2024TAR00241

PATIENT

DRUGS (1)
  1. MICONAZOLE NITRATE [Suspect]
     Active Substance: MICONAZOLE NITRATE
     Indication: Fungal infection
     Dosage: UNK, OD, 1 APPLICATORFUL BOTH DAYS MONDAY AND TUESDAY. SHE SAID IT GOT SO BAD THERE WAS NO WAY SHE C
     Route: 067
     Dates: start: 20240218, end: 20240219

REACTIONS (5)
  - Dermatitis diaper [Recovering/Resolving]
  - Allergy to chemicals [Recovering/Resolving]
  - Condition aggravated [Recovering/Resolving]
  - Pruritus [Recovering/Resolving]
  - Inappropriate schedule of product administration [Unknown]

NARRATIVE: CASE EVENT DATE: 20240201
